FAERS Safety Report 16934346 (Version 1)
Quarter: 2019Q4

REPORT INFORMATION
  Report Type: Spontaneous
  Country: US (occurrence: US)
  Receive Date: 20190827
  Receipt Date: 20190827
  Transmission Date: 20200122
  Serious: Yes (Hospitalization)
  Sender: FDA-Public Use
  Company Number: None

PATIENT
  Age: 57 Year
  Sex: Female

DRUGS (1)
  1. REPATHA [Suspect]
     Active Substance: EVOLOCUMAB
     Indication: LIPOPROTEIN ABNORMAL
     Route: 058
     Dates: start: 20190219

REACTIONS (3)
  - Pain in extremity [None]
  - Nasopharyngitis [None]
  - Hypertension [None]

NARRATIVE: CASE EVENT DATE: 20190801
